FAERS Safety Report 23657075 (Version 1)
Quarter: 2024Q1

REPORT INFORMATION
  Report Type: Spontaneous
  Country: CN (occurrence: CN)
  Receive Date: 20240321
  Receipt Date: 20240321
  Transmission Date: 20240409
  Serious: Yes (Death, Hospitalization)
  Sender: FDA-Public Use
  Company Number: CN-STRIDES ARCOLAB LIMITED-2024SP003181

PATIENT
  Age: 6 Year
  Sex: Female

DRUGS (17)
  1. PREDNISOLONE [Suspect]
     Active Substance: PREDNISOLONE
     Indication: Angiostrongylus infection
     Dosage: UNK
     Route: 065
  2. ACYCLOVIR [Suspect]
     Active Substance: ACYCLOVIR
     Indication: Intracranial infection
     Dosage: 10 MILLIGRAM/KILOGRAM
     Route: 065
  3. ACYCLOVIR [Suspect]
     Active Substance: ACYCLOVIR
     Indication: Immune-mediated encephalitis
  4. MEROPENEM [Suspect]
     Active Substance: MEROPENEM
     Indication: Intracranial infection
     Dosage: 40 MILLIGRAM/KILOGRAM
     Route: 065
  5. ALBENDAZOLE [Suspect]
     Active Substance: ALBENDAZOLE
     Indication: Angiostrongylus infection
     Dosage: UNK
     Route: 065
  6. HUMAN IMMUNOGLOBULIN G [Suspect]
     Active Substance: HUMAN IMMUNOGLOBULIN G
     Indication: Encephalitis autoimmune
     Dosage: 2 GRAM PER KILOGRAM
     Route: 065
  7. METHYLPREDNISOLONE [Suspect]
     Active Substance: METHYLPREDNISOLONE
     Indication: Encephalitis autoimmune
     Dosage: 500 MILLIGRAM/DAY
     Route: 065
  8. VORICONAZOLE [Concomitant]
     Active Substance: VORICONAZOLE
     Indication: Fungal infection
     Dosage: 9 MILLIGRAM/KILOGRAM, EVERY 12 HRS
     Route: 048
  9. VORICONAZOLE [Concomitant]
     Active Substance: VORICONAZOLE
     Dosage: UNK
     Route: 042
  10. FLUCYTOSINE [Concomitant]
     Active Substance: FLUCYTOSINE
     Indication: Fungal infection
     Dosage: 25 MILLIGRAM/KILOGRAM, EVERY 6 HRS
     Route: 065
  11. AMPHOTERICIN B [Concomitant]
     Active Substance: AMPHOTERICIN B
     Indication: Fungal infection
     Dosage: 0.5 MILLIGRAM/KILOGRAM PER DAY
     Route: 065
  12. AMPHOTERICIN B [Concomitant]
     Active Substance: AMPHOTERICIN B
     Dosage: 5 MILLIGRAM/KILOGRAM PER DAY
     Route: 065
  13. AMPHOTERICIN B [Concomitant]
     Active Substance: AMPHOTERICIN B
     Dosage: 0.1 MILLIGRAM, (INJECTION)
     Route: 037
     Dates: start: 20200123
  14. AMPHOTERICIN B [Concomitant]
     Active Substance: AMPHOTERICIN B
     Dosage: 1 MILLIGRAM, THRICE  A WEEK, UNK, INCREMENT OF 0.1MG TO 1MG, (THREE TIMES A WEEK), INJECTION
     Route: 037
  15. FRUCTOSE\GLYCERIN\SODIUM CHLORIDE [Concomitant]
     Active Substance: FRUCTOSE\GLYCERIN\SODIUM CHLORIDE
     Indication: Hydrocephalus
     Dosage: UNK UNK, EVERY 6 HRS
     Route: 042
  16. MANNITOL [Concomitant]
     Active Substance: MANNITOL
     Indication: Hydrocephalus
     Dosage: UNK UNK, EVERY 6 HRS
     Route: 042
  17. POSACONAZOLE [Concomitant]
     Active Substance: POSACONAZOLE
     Indication: Fungal infection
     Dosage: UNK
     Route: 065

REACTIONS (7)
  - Sepsis [Fatal]
  - Respiratory tract infection [Fatal]
  - Respiratory failure [Fatal]
  - Epilepsy [Fatal]
  - Meningitis bacterial [Fatal]
  - Treatment failure [Unknown]
  - Off label use [Unknown]
